FAERS Safety Report 6382633-9 (Version None)
Quarter: 2009Q3

REPORT INFORMATION
  Report Type: 
  Country: None (occurrence: None)
  Receive Date: 20090928
  Receipt Date: 20090928
  Transmission Date: 20100115
  Serious: No
  Sender: FDA-Public Use
  Company Number: None

PATIENT
  Age: 2 Month
  Sex: Male
  Weight: 5.2164 kg

DRUGS (1)
  1. TYLENOL (CAPLET) [Suspect]
     Indication: INJECTION SITE PAIN
     Dosage: 0.4-0.5 ML EVERY 4 HRS PO
     Route: 048
     Dates: start: 20090911, end: 20090924

REACTIONS (2)
  - DIARRHOEA [None]
  - VOMITING [None]
